FAERS Safety Report 17258987 (Version 4)
Quarter: 2020Q3

REPORT INFORMATION
  Report Type: Report from Study
  Country: BR (occurrence: BR)
  Receive Date: 20200110
  Receipt Date: 20200720
  Transmission Date: 20201102
  Serious: Yes (Hospitalization, Other)
  Sender: FDA-Public Use
  Company Number: BR-SA-2019SA162545

PATIENT

DRUGS (3)
  1. CORTICOSTEROID NOS [Concomitant]
     Active Substance: CORTICOSTEROID NOS
     Dosage: UNK UNK, UNK
     Route: 065
  2. LARONIDASE [Suspect]
     Active Substance: LARONIDASE
     Indication: MUCOPOLYSACCHARIDOSIS
     Dosage: 3 BOTTLES, QW
     Route: 042
     Dates: start: 20190522
  3. DIPYRONE [Concomitant]
     Active Substance: DIPYRONE
     Dosage: UNK UNK, UNK
     Route: 065

REACTIONS (11)
  - Medical device discomfort [Not Recovered/Not Resolved]
  - Asphyxia [Recovered/Resolved]
  - Swelling face [Recovered/Resolved]
  - Pyrexia [Recovered/Resolved]
  - Product use issue [Unknown]
  - Abdominal distension [Not Recovered/Not Resolved]
  - Diarrhoea [Not Recovered/Not Resolved]
  - Hospitalisation [Recovered/Resolved]
  - Vomiting [Not Recovered/Not Resolved]
  - Suspected COVID-19 [Unknown]
  - Gastrointestinal tube insertion [Not Recovered/Not Resolved]

NARRATIVE: CASE EVENT DATE: 2019
